FAERS Safety Report 8202421-8 (Version None)
Quarter: 2012Q1

REPORT INFORMATION
  Report Type: 
  Country: None (occurrence: None)
  Receive Date: 20120312
  Receipt Date: 20110829
  Transmission Date: 20120608
  Serious: Yes (Hospitalization, Other)
  Sender: FDA-Public Use
  Company Number: US-ABBOTT-11P-163-0847512-00

PATIENT
  Sex: Male

DRUGS (3)
  1. DILANTIN [Suspect]
     Indication: CONVULSION
  2. UNKNOWN MEDICATION [Suspect]
     Indication: CONVULSION
  3. DEPAKOTE [Suspect]
     Indication: CONVULSION

REACTIONS (2)
  - DRUG INEFFECTIVE [None]
  - CONVULSION [None]
